FAERS Safety Report 4451703-4 (Version None)
Quarter: 2004Q3

REPORT INFORMATION
  Report Type: 
  Country: None (occurrence: None)
  Receive Date: 20040916
  Receipt Date: 20040909
  Transmission Date: 20050211
  Serious: Yes (Life-Threatening)
  Sender: FDA-Public Use
  Company Number: US-MERCK-0409USA00750

PATIENT
  Age: 61 Year
  Sex: Female
  Weight: 80 kg

DRUGS (22)
  1. PERCOGESIC [Concomitant]
     Route: 065
  2. ULTRACET [Concomitant]
     Route: 065
  3. ASPIRIN [Concomitant]
     Route: 065
  4. BETA CAROTENE [Concomitant]
     Route: 065
  5. CALCIUM (UNSPECIFIED) AND VITAMIN D (UNSPECIFIED) [Concomitant]
     Route: 065
  6. DICYCLOMINE HYDROCHLORIDE [Concomitant]
     Route: 065
  7. LEXAPRO [Concomitant]
     Route: 065
  8. HYDROCHLOROTHIAZIDE [Concomitant]
     Route: 065
  9. HYDROCODONE HYDROCHLORIDE [Concomitant]
     Indication: HEADACHE
     Route: 065
  10. LORAZEPAM [Concomitant]
     Route: 065
  11. MOBIC [Concomitant]
     Route: 065
  12. REMERON [Concomitant]
     Route: 065
  13. NORTRIPTYLINE [Concomitant]
     Route: 065
  14. PRILOSEC [Concomitant]
     Route: 065
  15. TRILEPTAL [Concomitant]
     Route: 065
  16. POTASSIUM (UNSPECIFIED) [Concomitant]
     Route: 065
  17. PROPOXYPHENE HYDROCHLORIDE [Concomitant]
     Route: 065
  18. VIOXX [Suspect]
     Indication: OSTEOARTHRITIS
     Route: 048
     Dates: start: 20040825, end: 20040909
  19. TRAZODONE HYDROCHLORIDE [Concomitant]
     Route: 065
  20. VITAMIN E [Concomitant]
     Route: 065
  21. VITAMINS (UNSPECIFIED) [Concomitant]
     Route: 065
  22. AMBIEN [Concomitant]
     Route: 065

REACTIONS (3)
  - CHEST PAIN [None]
  - DYSPNOEA AT REST [None]
  - ELECTROCARDIOGRAM ABNORMAL [None]
